FAERS Safety Report 7295372-7 (Version None)
Quarter: 2011Q1

REPORT INFORMATION
  Report Type: 
  Country: None (occurrence: None)
  Receive Date: 20110203
  Receipt Date: 20110124
  Transmission Date: 20110831
  Serious: Yes (Other)
  Sender: FDA-Public Use
  Company Number: 024569

PATIENT
  Sex: Female
  Weight: 67 kg

DRUGS (11)
  1. ASPIRIN [Concomitant]
  2. OMEPRAZOLE [Concomitant]
  3. MICARDIS [Concomitant]
  4. SIMVASTATIN [Concomitant]
  5. ALENDRONIC ACID [Concomitant]
  6. ARCOXIA [Concomitant]
  7. AMLODIPINE [Concomitant]
  8. CERTOLIZUMAB PEGOL (CERTOLIZUMAB PEGOL) [Suspect]
     Indication: RHEUMATOID ARTHRITIS
     Dosage: 400 MG 1X/2 WEEKS SUBCUTANEOUS
     Route: 058
     Dates: start: 20100920, end: 20101213
  9. PREDNISOLONE [Concomitant]
  10. ARAVA [Concomitant]
  11. CALCIUM W/ COLECALCIFEROL [Concomitant]

REACTIONS (12)
  - DRUG INTOLERANCE [None]
  - NAUSEA [None]
  - GASTROINTESTINAL VIRAL INFECTION [None]
  - DYSPNOEA [None]
  - DERMATITIS PSORIASIFORM [None]
  - DIARRHOEA [None]
  - SEPSIS [None]
  - CARDIAC FAILURE [None]
  - TACHYCARDIA [None]
  - WEIGHT DECREASED [None]
  - OEDEMA PERIPHERAL [None]
  - VOMITING [None]
